FAERS Safety Report 18945609 (Version 1)
Quarter: 2021Q1

REPORT INFORMATION
  Report Type: Spontaneous
  Country: TR (occurrence: TR)
  Receive Date: 20210226
  Receipt Date: 20210226
  Transmission Date: 20210420
  Serious: Yes (Other)
  Sender: FDA-Public Use
  Company Number: TR-UCBSA-2021008966

PATIENT

DRUGS (1)
  1. CIMZIA [Suspect]
     Active Substance: CERTOLIZUMAB PEGOL
     Indication: RHEUMATOID ARTHRITIS
     Dosage: UNK

REACTIONS (8)
  - Endometrial cancer [Unknown]
  - Rash [Unknown]
  - Neoplasm [Unknown]
  - Infection [Unknown]
  - Drug ineffective [Unknown]
  - Pneumonia [Unknown]
  - Herpes zoster [Unknown]
  - Furuncle [Unknown]
